FAERS Safety Report 11723414 (Version 1)
Quarter: 2015Q4

REPORT INFORMATION
  Report Type: Spontaneous
  Country: US (occurrence: None)
  Receive Date: 20151110
  Receipt Date: 20151110
  Transmission Date: 20160304
  Serious: Yes (Other)
  Sender: FDA-Public Use
  Company Number: None

PATIENT
  Age: 52 Year
  Sex: Female
  Weight: 81.65 kg

DRUGS (13)
  1. LEVOTHYROXINE. [Concomitant]
     Active Substance: LEVOTHYROXINE
  2. MULTIVITAMIN [Concomitant]
     Active Substance: VITAMINS
  3. VENLAFAXINE ER 150MG AUROBINDO [Suspect]
     Active Substance: VENLAFAXINE HYDROCHLORIDE
     Dosage: 2 CAPSULES
     Route: 048
  4. EFFXORE ER [Concomitant]
  5. LAMICTAL [Concomitant]
     Active Substance: LAMOTRIGINE
  6. WELLBUTRIN XL [Concomitant]
     Active Substance: BUPROPION HYDROCHLORIDE
  7. ABILIFY [Concomitant]
     Active Substance: ARIPIPRAZOLE
  8. BUFFERED ASPIRIN [Concomitant]
     Active Substance: ASPIRIN
  9. PROBIOTICS [Concomitant]
     Active Substance: PROBIOTICS NOS
  10. FENOFIBRATE. [Concomitant]
     Active Substance: FENOFIBRATE
  11. LOVAZA [Concomitant]
     Active Substance: OMEGA-3-ACID ETHYL ESTERS
  12. PRILOSEC [Suspect]
     Active Substance: OMEPRAZOLE MAGNESIUM
  13. LOPRESSOR [Concomitant]
     Active Substance: METOPROLOL TARTRATE

REACTIONS (6)
  - Fatigue [None]
  - Dizziness [None]
  - Anxiety [None]
  - Depressed mood [None]
  - Drug withdrawal syndrome [None]
  - Product substitution issue [None]

NARRATIVE: CASE EVENT DATE: 20151101
